FAERS Safety Report 17200333 (Version 1)
Quarter: 2019Q4

REPORT INFORMATION
  Report Type: Spontaneous
  Country: US (occurrence: US)
  Receive Date: 20191226
  Receipt Date: 20191226
  Transmission Date: 20200122
  Serious: Yes (Other)
  Sender: FDA-Public Use
  Company Number: US-ACCORD-167571

PATIENT
  Sex: Male

DRUGS (8)
  1. VENLAFAXINE/VENLAFAXINE HYDROCHLORIDE [Suspect]
     Active Substance: VENLAFAXINE HYDROCHLORIDE
     Indication: DEPRESSION
     Dosage: HEFTY DOSES
  2. ZIPRASIDONE/ZIPRASIDONE HYDROCHLORIDE/ZIPRASIDONE MESILATE [Suspect]
     Active Substance: ZIPRASIDONE HYDROCHLORIDE\ZIPRASIDONE MESYLATE
     Indication: AGGRESSION
     Dosage: HEFTY DOSES
  3. CLONAZEPAM. [Suspect]
     Active Substance: CLONAZEPAM
     Indication: AGGRESSION
     Dosage: HEFTY DOSES
  4. DIAZEPAM. [Suspect]
     Active Substance: DIAZEPAM
     Indication: AGGRESSION
     Dosage: HEFTY DOSES
  5. LAMOTRIGINE. [Suspect]
     Active Substance: LAMOTRIGINE
     Indication: MOOD ALTERED
     Dosage: HEFTY DOSES
  6. DIAZEPAM. [Suspect]
     Active Substance: DIAZEPAM
     Indication: ANXIETY
     Dosage: HEFTY DOSES
  7. ZIPRASIDONE. [Suspect]
     Active Substance: ZIPRASIDONE
     Indication: ANXIETY
     Dosage: HEFTY DOSES
  8. CLONAZEPAM. [Suspect]
     Active Substance: CLONAZEPAM
     Indication: MOOD ALTERED
     Dosage: HEFTY DOSES

REACTIONS (2)
  - Blunted affect [Recovering/Resolving]
  - Weight increased [Recovering/Resolving]
